FAERS Safety Report 4323676-6 (Version None)
Quarter: 2004Q1

REPORT INFORMATION
  Report Type: 
  Country: None (occurrence: None)
  Receive Date: 20040323
  Receipt Date: 20040309
  Transmission Date: 20041129
  Serious: Yes (Hospitalization, Other)
  Sender: FDA-Public Use
  Company Number: 230103

PATIENT
  Sex: Female
  Weight: 4.3 kg

DRUGS (11)
  1. NOVORAPID PENFILL 3 ML (NOVORAPID PENFILL 3 ML) (INSULIN ASPART) SOLUT [Suspect]
     Indication: DIABETES MELLITUS
     Dosage: 61 U, INTRAUTERINE
     Route: 015
     Dates: start: 20021201
  2. PROTAPHANE PENFILL HM (GE) 3ML (INSULIN HUMAN) SUSPENSION FOR INJECTIO [Concomitant]
  3. AKTIFERRIN (FERROUS SULFATE, SERINE) [Concomitant]
  4. CIMETIDINE [Concomitant]
  5. CEFONICIDE (CEFONICIDE) [Concomitant]
  6. EPHEDRIN (EPHEDRINE HYDROCHLORIDE) [Concomitant]
  7. PETIDIN (PETHIDINE HYDROCHLORIDE) [Concomitant]
  8. PHENERGAN ^NATRAPHARM^ (PROMETHAZINE HYDROCHLORIDE) [Concomitant]
  9. MARCAINE SPINAL 0.5% HEAVY (BUPIVACAINE HYDROCHLORIDE) [Concomitant]
  10. FENTANYL [Concomitant]
  11. PITOCIN [Concomitant]

REACTIONS (2)
  - HYPOGLYCAEMIA NEONATAL [None]
  - MATERNAL DRUGS AFFECTING FOETUS [None]
